FAERS Safety Report 4655997-1 (Version None)
Quarter: 2005Q2

REPORT INFORMATION
  Report Type: 
  Country: None (occurrence: None)
  Receive Date: 20050505
  Receipt Date: 20050414
  Transmission Date: 20051028
  Serious: Yes (Life-Threatening, Other)
  Sender: FDA-Public Use
  Company Number: DE_050415687

PATIENT
  Age: 58 Year
  Sex: Male
  Weight: 88 kg

DRUGS (1)
  1. GEMZAR [Suspect]
     Indication: BLADDER CANCER
     Dosage: 2070 MG
     Dates: start: 20050309

REACTIONS (3)
  - EMBOLISM [None]
  - LEUKOPENIA [None]
  - PLATELET COUNT INCREASED [None]
